FAERS Safety Report 6858668-6 (Version None)
Quarter: 2010Q3

REPORT INFORMATION
  Report Type: 
  Country: None (occurrence: None)
  Receive Date: 20100719
  Receipt Date: 20080207
  Transmission Date: 20110219
  Serious: No
  Sender: FDA-Public Use
  Company Number: US-PFIZER INC-2008014310

PATIENT
  Sex: Female
  Weight: 63.636 kg

DRUGS (4)
  1. CHANTIX [Suspect]
     Indication: SMOKING CESSATION THERAPY
     Dates: start: 20080101, end: 20080206
  2. AVAPRO [Concomitant]
  3. PRILOSEC [Concomitant]
  4. SYNTHROID [Concomitant]
     Indication: THYROID DISORDER

REACTIONS (6)
  - ABNORMAL DREAMS [None]
  - DIZZINESS [None]
  - FATIGUE [None]
  - FEELING ABNORMAL [None]
  - NAUSEA [None]
  - PSYCHOMOTOR HYPERACTIVITY [None]
